FAERS Safety Report 6917622-6 (Version None)
Quarter: 2010Q3

REPORT INFORMATION
  Report Type: 
  Country: None (occurrence: None)
  Receive Date: 20100806
  Receipt Date: 20100728
  Transmission Date: 20110219
  Serious: Yes (Other)
  Sender: FDA-Public Use
  Company Number: 3302010

PATIENT
  Age: 68 Year
  Sex: Male

DRUGS (1)
  1. NYOLOL (TIMOLOL MALEATE EYE GEL) 0.1%; NOVARTIS [Suspect]
     Dosage: BID, OCULAR
     Dates: start: 20100517

REACTIONS (2)
  - PRODUCT QUALITY ISSUE [None]
  - VISION BLURRED [None]
